FAERS Safety Report 9931700 (Version 1)
Quarter: 2014Q1

REPORT INFORMATION
  Report Type: Spontaneous
  Country: US (occurrence: US)
  Receive Date: 20140228
  Receipt Date: 20140228
  Transmission Date: 20141002
  Serious: Yes (Other)
  Sender: FDA-Public Use
  Company Number: US-BAYER-2014-027114

PATIENT
  Sex: Female

DRUGS (19)
  1. AVELOX [Suspect]
     Indication: PHARYNGITIS STREPTOCOCCAL
     Dosage: 400 MG, QD, 10-14 DAYS
     Dates: start: 2013, end: 2013
  2. AVELOX [Suspect]
     Indication: LUNG INFECTION
     Dosage: 400 MG, QD, 10-14 DAYS
     Dates: start: 2013, end: 2013
  3. AVELOX [Suspect]
     Indication: SINUSITIS
     Dosage: 400 MG, QD, 10-14 DAYS
     Dates: start: 2013, end: 2013
  4. AVELOX [Suspect]
     Indication: PHARYNGITIS STREPTOCOCCAL
     Dosage: 400 MG, QD, 10-14 DAYS
     Dates: start: 2013, end: 2013
  5. AVELOX [Suspect]
     Indication: PHARYNGITIS STREPTOCOCCAL
     Dosage: 400 MG, QD, 10-14 DAYS
     Dates: start: 2013, end: 2013
  6. AVELOX [Suspect]
     Indication: PHARYNGITIS STREPTOCOCCAL
     Dosage: 400 MG, QD, 10-14 DAYS
     Dates: start: 2013, end: 2013
  7. AVELOX [Suspect]
     Indication: PHARYNGITIS STREPTOCOCCAL
     Dosage: 400 MG, QD, 10-14 DAYS
     Dates: start: 2013, end: 2013
  8. AVELOX [Suspect]
     Indication: PHARYNGITIS STREPTOCOCCAL
     Dosage: 400 MG, QD, 10-14 DAYS
     Dates: start: 2013, end: 2013
  9. AVELOX [Suspect]
     Indication: PHARYNGITIS STREPTOCOCCAL
     Dosage: 400 MG, QD, 10-14 DAYS
     Dates: start: 2013, end: 2013
  10. AVELOX [Suspect]
     Indication: PHARYNGITIS STREPTOCOCCAL
     Dosage: 400 MG, QD, 10-14 DAYS
     Dates: start: 2013, end: 2013
  11. AVELOX [Suspect]
     Indication: PHARYNGITIS STREPTOCOCCAL
     Dosage: 400 MG, QD
     Dates: start: 2014
  12. AZITHROMYCIN [Concomitant]
     Indication: LUNG INFECTION
     Dosage: UNK UNK, TIW
  13. LEVOTHYROXINE [Concomitant]
  14. SPIRONOLACTONE [Concomitant]
  15. MONTELUKAST [Concomitant]
  16. PANTOPRAZOLE [Concomitant]
  17. ZYRTEC [Concomitant]
  18. VITAMIN D [Concomitant]
  19. INSULIN [Concomitant]

REACTIONS (5)
  - Urinary tract infection [Recovered/Resolved]
  - Urinary tract infection [Recovered/Resolved]
  - Urinary tract infection [Recovered/Resolved]
  - Urinary tract infection [Recovered/Resolved]
  - Urinary tract infection [Recovered/Resolved]
